FAERS Safety Report 7153199-0 (Version None)
Quarter: 2010Q4

REPORT INFORMATION
  Report Type: 
  Country: None (occurrence: None)
  Receive Date: 20101209
  Receipt Date: 20101209
  Transmission Date: 20110411
  Serious: Yes (Other)
  Sender: FDA-Public Use
  Company Number: None

PATIENT
  Age: 76 Year
  Sex: Female
  Weight: 64.8644 kg

DRUGS (1)
  1. DETROL LA [Suspect]
     Indication: POLLAKIURIA
     Dosage: 4 MG 1 DAILY; 2 MG BEDTIME
     Dates: start: 20100929, end: 20101123

REACTIONS (4)
  - INSOMNIA [None]
  - MALAISE [None]
  - NERVOUSNESS [None]
  - POLLAKIURIA [None]
